FAERS Safety Report 5422093-5 (Version None)
Quarter: 2007Q3

REPORT INFORMATION
  Report Type: 
  Country: None (occurrence: None)
  Receive Date: 20070821
  Receipt Date: 20070821
  Transmission Date: 20080115
  Serious: Yes (Life-Threatening)
  Sender: FDA-Public Use
  Company Number: None

PATIENT
  Age: 50 Year
  Sex: Female
  Weight: 78.9259 kg

DRUGS (4)
  1. LYRICA [Suspect]
     Indication: NEURALGIA
     Dosage: 1 X 1 A DAY DAILY PO
     Route: 048
     Dates: start: 20060701, end: 20070719
  2. LYRICA [Suspect]
     Indication: PAIN
     Dosage: 1 X 1 A DAY DAILY PO
     Route: 048
     Dates: start: 20060701, end: 20070719
  3. PREGABALIN 75 PFZIER [Suspect]
     Indication: INTERVERTEBRAL DISC PROTRUSION
     Dosage: 2 X 1 A DAY DAILY PO
     Route: 048
  4. PREGABALIN 75 PFZIER [Suspect]
     Indication: NEURALGIA
     Dosage: 2 X 1 A DAY DAILY PO
     Route: 048

REACTIONS (14)
  - ABDOMINAL PAIN UPPER [None]
  - ABNORMAL SLEEP-RELATED EVENT [None]
  - AUTOIMMUNE DISORDER [None]
  - BACK INJURY [None]
  - CEREBROVASCULAR ACCIDENT [None]
  - DEMENTIA ALZHEIMER'S TYPE [None]
  - DEMYELINATION [None]
  - FALL [None]
  - HEADACHE [None]
  - LOSS OF CONSCIOUSNESS [None]
  - NERVOUS SYSTEM DISORDER [None]
  - PAIN [None]
  - PETIT MAL EPILEPSY [None]
  - RESTLESSNESS [None]
